FAERS Safety Report 7774969-1 (Version None)
Quarter: 2011Q3

REPORT INFORMATION
  Report Type: 
  Country: None (occurrence: None)
  Receive Date: 20110923
  Receipt Date: 20110919
  Transmission Date: 20111222
  Serious: Yes (Life-Threatening, Hospitalization, Other)
  Sender: FDA-Public Use
  Company Number: PHHY2011GB79596

PATIENT
  Age: 45 Year
  Sex: Female

DRUGS (4)
  1. CLONAZEPAM [Concomitant]
     Dosage: 2 MG, QD
  2. LAMOTRIGINE [Suspect]
     Dosage: 100 MG DAILY
  3. CARBAMAZEPINE [Concomitant]
     Dosage: 1000 MG, QD
  4. LAMOTRIGINE [Suspect]
     Indication: COMPLEX PARTIAL SEIZURES
     Dosage: 25 MG, QD

REACTIONS (15)
  - DRUG RASH WITH EOSINOPHILIA AND SYSTEMIC SYMPTOMS [None]
  - ATAXIA [None]
  - MALAISE [None]
  - SOMNOLENCE [None]
  - THROMBOCYTOPENIA [None]
  - DISSEMINATED INTRAVASCULAR COAGULATION [None]
  - INFLUENZA LIKE ILLNESS [None]
  - BLOOD LACTATE DEHYDROGENASE INCREASED [None]
  - HYPERPYREXIA [None]
  - LIVER DISORDER [None]
  - RHABDOMYOLYSIS [None]
  - RASH MACULO-PAPULAR [None]
  - ASPARTATE AMINOTRANSFERASE INCREASED [None]
  - RENAL FAILURE [None]
  - DUODENAL ULCER PERFORATION [None]
